FAERS Safety Report 20582505 (Version 1)
Quarter: 2022Q1

REPORT INFORMATION
  Report Type: Spontaneous
  Country: US (occurrence: None)
  Receive Date: 20220311
  Receipt Date: 20220311
  Transmission Date: 20220424
  Serious: No
  Sender: FDA-Public Use
  Company Number: None

PATIENT
  Age: 67 Year
  Sex: Male

DRUGS (1)
  1. VALBENAZINE [Suspect]
     Active Substance: VALBENAZINE
     Dosage: OTHER QUANTITY : 1 TAB;?FREQUENCY : AT BEDTIME;?
     Route: 048
     Dates: start: 20220103, end: 20220119

REACTIONS (2)
  - Dizziness [None]
  - Sedation [None]

NARRATIVE: CASE EVENT DATE: 20220119
